FAERS Safety Report 20397540 (Version 1)
Quarter: 2022Q1

REPORT INFORMATION
  Report Type: Spontaneous
  Country: US (occurrence: None)
  Receive Date: 20220131
  Receipt Date: 20220131
  Transmission Date: 20220423
  Serious: No
  Sender: FDA-Public Use
  Company Number: 2022A019003

PATIENT
  Sex: Female

DRUGS (3)
  1. FASENRA [Suspect]
     Active Substance: BENRALIZUMAB
     Route: 058
     Dates: start: 202003, end: 202006
  2. FASENRA [Suspect]
     Active Substance: BENRALIZUMAB
     Route: 058
     Dates: start: 202006, end: 202104
  3. NUCALA [Concomitant]
     Active Substance: MEPOLIZUMAB
     Route: 065
     Dates: start: 201704

REACTIONS (1)
  - Hallucination, auditory [Unknown]
